FAERS Safety Report 17870212 (Version 2)
Quarter: 2020Q2

REPORT INFORMATION
  Report Type: Spontaneous
  Country: US (occurrence: US)
  Receive Date: 20200608
  Receipt Date: 20200613
  Transmission Date: 20200714
  Serious: No
  Sender: FDA-Public Use
  Company Number: US-DRREDDYS-USA/USA/20/0123638

PATIENT
  Age: 68 Year
  Sex: Female
  Weight: 48.6 kg

DRUGS (2)
  1. CIPROFLOXACIN. [Suspect]
     Active Substance: CIPROFLOXACIN
     Route: 048
     Dates: start: 202006
  2. CIPROFLOXACIN. [Suspect]
     Active Substance: CIPROFLOXACIN
     Indication: URINARY TRACT INFECTION
     Route: 048

REACTIONS (5)
  - Product prescribing issue [Unknown]
  - Dermatitis diaper [Unknown]
  - Product administration error [Unknown]
  - Wrong technique in product usage process [Unknown]
  - Product residue present [Unknown]
